FAERS Safety Report 7924162-4 (Version None)
Quarter: 2011Q4

REPORT INFORMATION
  Report Type: 
  Country: None (occurrence: None)
  Receive Date: 20111117
  Receipt Date: 20110215
  Transmission Date: 20120403
  Serious: No
  Sender: FDA-Public Use
  Company Number: US-AMGEN-USASP2011009055

PATIENT
  Age: 79 Year
  Sex: Female

DRUGS (1)
  1. ENBREL [Suspect]
     Indication: RHEUMATOID ARTHRITIS
     Dosage: 50 MG, QWK
     Dates: start: 20090301

REACTIONS (6)
  - NASAL CONGESTION [None]
  - OROPHARYNGEAL PAIN [None]
  - EPISTAXIS [None]
  - NASOPHARYNGITIS [None]
  - THROMBOSIS [None]
  - NASAL DRYNESS [None]
